FAERS Safety Report 24776150 (Version 1)
Quarter: 2024Q4

REPORT INFORMATION
  Report Type: Spontaneous
  Country: US (occurrence: US)
  Receive Date: 20241226
  Receipt Date: 20241226
  Transmission Date: 20250115
  Serious: Yes (Other)
  Sender: BRISTOL-MYERS SQUIBB COMPANY
  Company Number: US-BRISTOL-MYERS SQUIBB COMPANY-2024-199458

PATIENT
  Age: 31 Year
  Sex: Female

DRUGS (5)
  1. SPRYCEL [Suspect]
     Active Substance: DASATINIB
     Indication: Chronic myeloid leukaemia
  2. TASIGNA [Concomitant]
     Active Substance: NILOTINIB
     Indication: Product used for unknown indication
  3. GLEEVEC [Concomitant]
     Active Substance: IMATINIB MESYLATE
     Indication: Product used for unknown indication
  4. WELLBUTRIN SR [Concomitant]
     Active Substance: BUPROPION HYDROCHLORIDE
     Indication: Product used for unknown indication
  5. THORAZINE [Concomitant]
     Active Substance: CHLORPROMAZINE
     Indication: Product used for unknown indication

REACTIONS (2)
  - Drug ineffective [Unknown]
  - Haemoglobin decreased [Unknown]

NARRATIVE: CASE EVENT DATE: 20241220
